FAERS Safety Report 9859248 (Version 1)
Quarter: 2014Q1

REPORT INFORMATION
  Report Type: Spontaneous
  Country: NO (occurrence: None)
  Receive Date: 20140108
  Receipt Date: 20140108
  Transmission Date: 20141002
  Serious: Yes (Hospitalization)
  Sender: FDA-Public Use
  Company Number: GAM-476-13-NO

PATIENT
  Age: 33 Year
  Sex: Male

DRUGS (2)
  1. OCTAGAM [Suspect]
     Indication: GUILLAIN-BARRE SYNDROME
     Route: 042
     Dates: start: 20131113, end: 20131117
  2. DALTEPARIN [Concomitant]

REACTIONS (1)
  - Deep vein thrombosis [None]
